FAERS Safety Report 23446798 (Version 1)
Quarter: 2024Q1

REPORT INFORMATION
  Report Type: Other
  Country: None (occurrence: CA)
  Receive Date: 20240126
  Receipt Date: 20240126
  Transmission Date: 20240409
  Serious: Yes (Death, Other)
  Sender: FDA-Public Use
  Company Number: CA-Nuvo Pharmaceuticals Inc-2152066

PATIENT
  Age: 30 Year
  Sex: Male
  Weight: 84 kg

DRUGS (12)
  1. DIAZEPAM [Suspect]
     Active Substance: DIAZEPAM
     Indication: Product used for unknown indication
     Route: 065
  2. CLONAZEPAM [Suspect]
     Active Substance: CLONAZEPAM
     Route: 065
  3. METHYLPHENIDATE [Suspect]
     Active Substance: METHYLPHENIDATE
     Route: 065
  4. PREGABALIN [Suspect]
     Active Substance: PREGABALIN
     Route: 065
  5. NORTRIPTYLINE HYDROCHLORIDE [Suspect]
     Active Substance: NORTRIPTYLINE HYDROCHLORIDE
     Route: 065
  6. BENZOYLECGONINE [Concomitant]
     Active Substance: BENZOYLECGONINE
     Route: 065
  7. OXYCODONE. [Concomitant]
     Active Substance: OXYCODONE HYDROCHLORIDE
     Route: 065
  8. NSO Furanyl-fentanyl [Concomitant]
     Route: 065
  9. 4-ANPP [Concomitant]
     Route: 065
  10. U-47700 [Concomitant]
     Active Substance: U-47700
     Route: 065
  11. 9-tetrahydro cannabinol [Concomitant]
     Route: 065
  12. NAPROXEN [Suspect]
     Active Substance: NAPROXEN
     Route: 065

REACTIONS (1)
  - Toxicity to various agents [Fatal]
